FAERS Safety Report 17241560 (Version 3)
Quarter: 2022Q3

REPORT INFORMATION
  Report Type: Spontaneous
  Country: US (occurrence: US)
  Receive Date: 20200107
  Receipt Date: 20220826
  Transmission Date: 20221027
  Serious: No
  Sender: FDA-Public Use
  Company Number: US-MYLANLABS-2019M1127890

PATIENT
  Sex: Male
  Weight: 21.31 kg

DRUGS (5)
  1. CYSTAGON [Suspect]
     Active Substance: CYSTEAMINE BITARTRATE
     Indication: Cystinosis
     Dosage: 150 MG EVERY 6 HOURS
     Route: 065
     Dates: start: 201805
  2. CYSTAGON [Suspect]
     Active Substance: CYSTEAMINE BITARTRATE
     Indication: Amino acid metabolism disorder
     Dosage: 300 MILLIGRAM, QID (FOUR TIMES DAILY GTUBE)
     Route: 065
     Dates: start: 202203
  3. CYSTAGON [Suspect]
     Active Substance: CYSTEAMINE BITARTRATE
     Dosage: 300 MILLIGRAM, QID (FOUR TIMES DAILY GTUBE)
     Route: 065
     Dates: start: 201806
  4. CYSTAGON [Suspect]
     Active Substance: CYSTEAMINE BITARTRATE
     Indication: Cystinosis
     Dosage: 50 MILLIGRAM, Q6H (EVERY 6 HOURS BY MOUTH)
     Route: 048
     Dates: start: 202204
  5. CYSTAGON [Suspect]
     Active Substance: CYSTEAMINE BITARTRATE
     Indication: Amino acid metabolism disorder
     Dosage: 50 MILLIGRAM, Q6H (EVERY 6 HOURS BY MOUTH)
     Route: 048
     Dates: start: 201806

REACTIONS (2)
  - Weight fluctuation [Not Recovered/Not Resolved]
  - Off label use [Unknown]
